FAERS Safety Report 4291399-8 (Version None)
Quarter: 2004Q1

REPORT INFORMATION
  Report Type: 
  Country: None (occurrence: None)
  Receive Date: 20040211
  Receipt Date: 20030429
  Transmission Date: 20041129
  Serious: No
  Sender: FDA-Public Use
  Company Number: US-BRISTOL-MYERS SQUIBB COMPANY-12258513

PATIENT
  Sex: Female
  Weight: 63 kg

DRUGS (4)
  1. CEFZIL [Suspect]
     Indication: INFECTION
     Route: 048
  2. PREVACID [Concomitant]
  3. PREMARIN [Concomitant]
  4. ESTROGEN PATCH [Concomitant]

REACTIONS (4)
  - EYE PRURITUS [None]
  - EYE SWELLING [None]
  - PRURITUS [None]
  - THROAT TIGHTNESS [None]
